FAERS Safety Report 9700770 (Version 3)
Quarter: 2013Q4

REPORT INFORMATION
  Report Type: Report from Study
  Country: NL (occurrence: NL)
  Receive Date: 20131121
  Receipt Date: 20131202
  Transmission Date: 20140711
  Serious: Yes (Hospitalization)
  Sender: FDA-Public Use
  Company Number: PHHY2013NL106789

PATIENT
  Sex: Male

DRUGS (13)
  1. ZOMETA [Suspect]
     Indication: PROSTATE CANCER METASTATIC
     Dosage: 4 MG/100 ML, ONCE PER EVERY 4 WEEKS
     Route: 042
  2. ZOMETA [Suspect]
     Dosage: 4 MG/100 ML, ONCE PER EVERY 4 WEEKS
     Route: 042
     Dates: start: 20130822
  3. ZOMETA [Suspect]
     Dosage: 4 MG/100 ML, ONCE PER EVERY 4 WEEKS
     Route: 042
     Dates: start: 20130923
  4. ZOMETA [Suspect]
     Dosage: 4 MG/100 ML, ONCE PER EVERY 4 WEEKS
     Route: 042
     Dates: start: 20131021
  5. ZOMETA [Suspect]
     Dosage: 4 MG/100 ML, ONCE PER EVERY 4 WEEKS
     Route: 042
     Dates: start: 20131118
  6. METOPROLOL [Concomitant]
     Dosage: UNK UKN, UNK
  7. ASACOL [Concomitant]
     Dosage: UNK UKN, UNK
  8. CRESTOR [Concomitant]
     Dosage: UNK UKN, UNK
  9. PERINDOPRIL [Concomitant]
     Dosage: UNK UKN, UNK
  10. FUROSEMIDE [Concomitant]
     Dosage: UNK UKN, UNK
  11. AMLODIPINE [Concomitant]
     Dosage: UNK UKN, UNK
  12. ESOMEPRAZOLE [Concomitant]
     Dosage: UNK UKN, UNK
  13. ZOLADEX [Concomitant]
     Dosage: UNK UKN, UNK

REACTIONS (6)
  - Fall [Recovered/Resolved]
  - Heart rate decreased [Unknown]
  - Dizziness [Recovered/Resolved]
  - Hypertension [Unknown]
  - Syncope [Unknown]
  - Chills [Unknown]
